FAERS Safety Report 12977859 (Version 1)
Quarter: 2016Q4

REPORT INFORMATION
  Report Type: Spontaneous
  Country: AU (occurrence: AU)
  Receive Date: 20161128
  Receipt Date: 20161128
  Transmission Date: 20170207
  Serious: Yes (Death, Other)
  Sender: FDA-Public Use
  Company Number: PHHY2016AU120699

PATIENT
  Age: 80 Year
  Sex: Female

DRUGS (2)
  1. ENTRESTO [Suspect]
     Active Substance: SACUBITRIL\VALSARTAN
     Indication: CARDIAC FAILURE
     Dosage: 50 MG (24/26 MG), BID
     Route: 048
  2. ENTRESTO [Suspect]
     Active Substance: SACUBITRIL\VALSARTAN
     Indication: CARDIAC FAILURE CONGESTIVE
     Dosage: 200 MG, (97.3/102.8 MG)
     Route: 048
     Dates: start: 20160526, end: 20160630

REACTIONS (7)
  - Angioedema [Recovered/Resolved]
  - Swelling face [Recovered/Resolved]
  - Swollen tongue [Unknown]
  - Death [Fatal]
  - Dyspnoea [Recovered/Resolved]
  - Lip swelling [Unknown]
  - Rash [Recovered/Resolved]

NARRATIVE: CASE EVENT DATE: 20160630
